FAERS Safety Report 19459099 (Version 1)
Quarter: 2021Q2

REPORT INFORMATION
  Report Type: Spontaneous
  Country: US (occurrence: US)
  Receive Date: 20210625
  Receipt Date: 20210625
  Transmission Date: 20210717
  Serious: Yes (Other)
  Sender: FDA-Public Use
  Company Number: None

PATIENT
  Age: 60 Year
  Sex: Male
  Weight: 103.5 kg

DRUGS (10)
  1. FENOFIBRATE MICRONIZED [Concomitant]
     Active Substance: FENOFIBRATE
  2. ASPIRIN 81 MG [Concomitant]
     Active Substance: ASPIRIN
  3. METOPROLOL SUCCINATE XL [Concomitant]
     Active Substance: METOPROLOL SUCCINATE
  4. SIMVASTATIN. [Concomitant]
     Active Substance: SIMVASTATIN
  5. HUMULIN R U?500 KWIKPEN [Suspect]
     Active Substance: INSULIN HUMAN
     Indication: TYPE 2 DIABETES MELLITUS
     Dosage: ?          QUANTITY:140 UNITS;?
     Route: 058
     Dates: start: 20210604, end: 20210623
  6. AMLODIPINE [Concomitant]
     Active Substance: AMLODIPINE BESYLATE
  7. LOSARTAN. [Concomitant]
     Active Substance: LOSARTAN
  8. NATURE MADE EXTRA STRENGTH MAGNESIUM OXIDE SOFTGELS [Concomitant]
  9. ONE?A?DAY MENS 50+ VITAMIN [Concomitant]
  10. OCUVITE EYE VITAMIN + MINERAL SUPPLEMENT [Concomitant]

REACTIONS (2)
  - Dyspnoea [None]
  - Peripheral swelling [None]

NARRATIVE: CASE EVENT DATE: 20210612
